FAERS Safety Report 5318247-9 (Version None)
Quarter: 2007Q2

REPORT INFORMATION
  Report Type: 
  Country: None (occurrence: None)
  Receive Date: 20070507
  Receipt Date: 20070425
  Transmission Date: 20071010
  Serious: Yes (Other)
  Sender: FDA-Public Use
  Company Number: PHBS2007CH07374

PATIENT
  Sex: Male

DRUGS (4)
  1. ASPIRIN [Concomitant]
  2. IRBESARTAN [Concomitant]
  3. LIQUAEMIN INJ [Concomitant]
  4. LAMISIL [Suspect]

REACTIONS (1)
  - ATRIAL FIBRILLATION [None]
